FAERS Safety Report 25494819 (Version 5)
Quarter: 2025Q4

REPORT INFORMATION
  Report Type: Spontaneous
  Country: JP (occurrence: JP)
  Receive Date: 20250630
  Receipt Date: 20251008
  Transmission Date: 20260118
  Serious: Yes (Life-Threatening, Hospitalization, Disabling, Other)
  Sender: NOVO NORDISK
  Company Number: JP-NOVOPROD-1465323

PATIENT
  Age: 6 Decade
  Sex: Male
  Weight: 76 kg

DRUGS (4)
  1. CONCIZUMAB [Suspect]
     Active Substance: CONCIZUMAB
     Indication: Factor VIII deficiency
     Dosage: 15 MG, QD
     Route: 058
     Dates: start: 20241212, end: 20250108
  2. CONCIZUMAB [Suspect]
     Active Substance: CONCIZUMAB
     Dosage: 19 MG, QD
     Route: 058
     Dates: start: 20250206, end: 2025
  3. DESCOVY [Concomitant]
     Active Substance: EMTRICITABINE\TENOFOVIR ALAFENAMIDE FUMARATE
     Indication: Product used for unknown indication
     Dosage: UNK
  4. ADYNOVATE [Concomitant]
     Active Substance: ANTIHEMOPHILIC FACTOR, HUMAN RECOMBINANT
     Indication: Product used for unknown indication
     Dosage: UNK

REACTIONS (5)
  - Acute myocardial infarction [Not Recovered/Not Resolved]
  - Cardiac arrest [Not Recovered/Not Resolved]
  - Ventricular fibrillation [Not Recovered/Not Resolved]
  - Postresuscitation encephalopathy [Not Recovered/Not Resolved]
  - Treatment noncompliance [Unknown]

NARRATIVE: CASE EVENT DATE: 20250619
